FAERS Safety Report 10576160 (Version 1)
Quarter: 2014Q4

REPORT INFORMATION
  Report Type: Spontaneous
  Country: GB (occurrence: GB)
  Receive Date: 20141111
  Receipt Date: 20141111
  Transmission Date: 20150529
  Serious: Yes (Other)
  Sender: FDA-Public Use
  Company Number: GB-BANPHARM-20143193

PATIENT
  Age: 68 Year
  Sex: Female
  Weight: 85 kg

DRUGS (1)
  1. IBUPROFEN UNKNOWN PRODUCT [Suspect]
     Active Substance: IBUPROFEN
     Indication: OSTEOARTHRITIS
     Dosage: 400 MG, EVERY 3 DAYS
     Route: 048
     Dates: start: 20040812

REACTIONS (1)
  - Essential hypertension [Not Recovered/Not Resolved]

NARRATIVE: CASE EVENT DATE: 20100316
